FAERS Safety Report 9491695 (Version 2)
Quarter: 2013Q3

REPORT INFORMATION
  Report Type: Report from Study
  Country: AT (occurrence: AT)
  Receive Date: 20130830
  Receipt Date: 20130830
  Transmission Date: 20140515
  Serious: Yes (Hospitalization)
  Sender: FDA-Public Use
  Company Number: PHHO2011AT14098

PATIENT
  Age: 55 Year
  Sex: Male
  Weight: 122.6 kg

DRUGS (2)
  1. ALISKIREN [Suspect]
     Indication: CARDIOVASCULAR DISORDER
     Route: 048
     Dates: start: 20100715, end: 20110812
  2. ACE INHIBITORS [Suspect]

REACTIONS (2)
  - Renal impairment [Unknown]
  - Concomitant disease progression [Unknown]
